FAERS Safety Report 4590668-1 (Version None)
Quarter: 2005Q1

REPORT INFORMATION
  Report Type: 
  Country: None (occurrence: None)
  Receive Date: 20050224
  Receipt Date: 20030811
  Transmission Date: 20050727
  Serious: Yes (Death, Hospitalization, Other)
  Sender: FDA-Public Use
  Company Number: NL-ABBOTT-03P-114-0229014-00

PATIENT
  Sex: Female

DRUGS (8)
  1. HUMIRA [Suspect]
     Indication: RHEUMATOID ARTHRITIS
     Route: 058
     Dates: start: 20030324, end: 20030620
  2. METHYLCELLULOSE [Concomitant]
     Indication: DRY EYE
     Route: 061
     Dates: start: 20010911
  3. IBUPROFEN [Concomitant]
     Indication: RHEUMATOID ARTHRITIS
     Route: 048
     Dates: start: 20030705
  4. SIDROS [Concomitant]
     Indication: IRON DEFICIENCY ANAEMIA
     Route: 048
     Dates: start: 20030601
  5. FERROUS FUMARATE [Concomitant]
     Indication: IRON DEFICIENCY ANAEMIA
     Route: 048
     Dates: start: 20030528, end: 20030611
  6. METHOTREXATE [Concomitant]
     Indication: RHEUMATOID ARTHRITIS
     Dosage: 22.5 MG
     Route: 048
     Dates: start: 19980622
  7. VIDISIC [Concomitant]
     Indication: DRY EYE
     Dosage: AS NECESSARY
     Route: 061
     Dates: start: 20011211
  8. OMEPRAZOLE [Concomitant]
     Indication: GASTRITIS
     Route: 048
     Dates: start: 20030611

REACTIONS (1)
  - OVARIAN CANCER [None]
